FAERS Safety Report 22655721 (Version 1)
Quarter: 2023Q2

REPORT INFORMATION
  Report Type: Spontaneous
  Country: US (occurrence: None)
  Receive Date: 20230629
  Receipt Date: 20230629
  Transmission Date: 20230721
  Serious: No
  Sender: FDA-Public Use
  Company Number: 2023A146514

PATIENT
  Age: 22865 Day

DRUGS (3)
  1. FARXIGA [Suspect]
     Active Substance: DAPAGLIFLOZIN PROPANEDIOL
     Route: 048
     Dates: start: 20230623
  2. OZEMPIC [Concomitant]
     Active Substance: SEMAGLUTIDE
     Dosage: 1.0MG UNKNOWN
  3. OZEMPIC [Concomitant]
     Active Substance: SEMAGLUTIDE
     Dosage: 2.0MG UNKNOWN
     Dates: start: 20230622

REACTIONS (3)
  - Musculoskeletal discomfort [Not Recovered/Not Resolved]
  - Arthralgia [Not Recovered/Not Resolved]
  - Muscular weakness [Not Recovered/Not Resolved]

NARRATIVE: CASE EVENT DATE: 20230623
